FAERS Safety Report 8983314 (Version 1)
Quarter: 2012Q4

REPORT INFORMATION
  Report Type: 
  Country: CA (occurrence: CA)
  Receive Date: 20121224
  Receipt Date: 20121224
  Transmission Date: 20130627
  Serious: Yes (Other)
  Sender: FDA-Public Use
  Company Number: CA-B.I. PHARMACEUTICALS,INC./RIDGEFIELD-2012-CN-02630CN

PATIENT
  Age: 80 Year
  Sex: Male
  Weight: 73.48 kg

DRUGS (11)
  1. PRADAX [Suspect]
     Dosage: 220 mg
     Route: 048
  2. AMIODARONE [Suspect]
     Dosage: 600 mg
     Route: 048
  3. AMIODARONE [Concomitant]
  4. DIAMICRON [Concomitant]
  5. ENTROPHEN [Concomitant]
  6. GLUCOBAY [Concomitant]
  7. HCTZ [Concomitant]
  8. LASIX [Concomitant]
  9. LIPITOR [Concomitant]
  10. SEROQUEL [Concomitant]
  11. VASOTEC [Concomitant]

REACTIONS (3)
  - Activated partial thromboplastin time prolonged [Unknown]
  - International normalised ratio increased [Unknown]
  - Renal impairment [Unknown]
